FAERS Safety Report 4633092-5 (Version None)
Quarter: 2005Q2

REPORT INFORMATION
  Report Type: 
  Country: None (occurrence: None)
  Receive Date: 20050411
  Receipt Date: 20050411
  Transmission Date: 20051028
  Serious: Yes (Life-Threatening)
  Sender: FDA-Public Use
  Company Number: None

PATIENT
  Sex: Female
  Weight: 516.1934 kg

DRUGS (4)
  1. DEPO-PROVERA [Suspect]
     Indication: CONTRACEPTION
     Dosage: INJECTION     EVERY 3 MONTHS
     Dates: start: 20050314, end: 20050410
  2. ALBUTEROL [Concomitant]
  3. BENADRYL [Concomitant]
  4. ANTIBOTICS [Concomitant]

REACTIONS (16)
  - ABDOMINAL PAIN UPPER [None]
  - ASTHMA [None]
  - DYSPNOEA [None]
  - EATING DISORDER [None]
  - EYE PAIN [None]
  - FEELING DRUNK [None]
  - FLUID RETENTION [None]
  - HEADACHE [None]
  - HOT FLUSH [None]
  - IRRITABILITY [None]
  - METRORRHAGIA [None]
  - MYALGIA [None]
  - SOMNOLENCE [None]
  - SYNCOPE [None]
  - VISION BLURRED [None]
  - WEIGHT INCREASED [None]
